FAERS Safety Report 4526352-X (Version None)
Quarter: 2004Q4

REPORT INFORMATION
  Report Type: 
  Country: None (occurrence: None)
  Receive Date: 20041210
  Receipt Date: 20041124
  Transmission Date: 20050328
  Serious: Yes (Hospitalization)
  Sender: FDA-Public Use
  Company Number: DSA_25397_2004

PATIENT
  Age: 17 Year
  Sex: Male

DRUGS (4)
  1. LORAZEPAM [Suspect]
     Dosage: 2 MG ONCE PO
     Route: 048
     Dates: start: 20041107, end: 20041107
  2. HALDOL [Suspect]
     Dosage: 5 MG ONCE PO
     Route: 048
     Dates: start: 20041107, end: 20041107
  3. NIPOLEPT ^AVENTIS^ [Suspect]
     Dosage: 100 MG ONCE PO
     Route: 048
     Dates: start: 20041107, end: 20041107
  4. TRUXAL [Suspect]
     Dosage: 225 MG ONCE PO
     Route: 048
     Dates: start: 20041107, end: 20041107

REACTIONS (5)
  - ACCIDENTAL OVERDOSE [None]
  - BRADYCARDIA [None]
  - COMA [None]
  - DRUG SCREEN POSITIVE [None]
  - HYPOTENSION [None]
